FAERS Safety Report 7905409-7 (Version None)
Quarter: 2011Q4

REPORT INFORMATION
  Report Type: 
  Country: None (occurrence: None)
  Receive Date: 20111109
  Receipt Date: 20110329
  Transmission Date: 20120403
  Serious: No
  Sender: FDA-Public Use
  Company Number: US-BAYER-2011-028353

PATIENT
  Sex: Female

DRUGS (1)
  1. CLIMARA [Suspect]
     Indication: OSTEOPOROSIS POSTMENOPAUSAL
     Dosage: 0.05 MG/D, UNK
     Route: 062
     Dates: start: 20091201

REACTIONS (4)
  - SKIN FRAGILITY [None]
  - APPLICATION SITE ERYTHEMA [None]
  - CONTUSION [None]
  - SKIN ATROPHY [None]
